FAERS Safety Report 25803332 (Version 1)
Quarter: 2025Q3

REPORT INFORMATION
  Report Type: Report from Study
  Country: US (occurrence: US)
  Receive Date: 20250915
  Receipt Date: 20250915
  Transmission Date: 20251020
  Serious: Yes (Other)
  Sender: ALEXION PHARMACEUTICALS
  Company Number: US-AstraZeneca-CH-00949910A

PATIENT
  Sex: Male
  Weight: 118 kg

DRUGS (10)
  1. CAPIVASERTIB [Suspect]
     Active Substance: CAPIVASERTIB
     Indication: Breast cancer male
     Dates: start: 20250516
  2. ELIQUIS [Concomitant]
     Active Substance: APIXABAN
     Route: 065
  3. EPIPEN [Concomitant]
     Active Substance: EPINEPHRINE
     Route: 065
  4. FASLODEX [Concomitant]
     Active Substance: FULVESTRANT
     Route: 065
  5. LISINOPRIL [Concomitant]
     Active Substance: LISINOPRIL
     Route: 065
  6. PRAVASTATIN SODIUM [Concomitant]
     Active Substance: PRAVASTATIN SODIUM
     Route: 065
  7. PREDNISONE [Concomitant]
     Active Substance: PREDNISONE
     Route: 065
  8. TRESIBA [Concomitant]
     Active Substance: INSULIN DEGLUDEC
     Route: 065
  9. VITAMIN D [Concomitant]
     Active Substance: VITAMIN D NOS
     Route: 065
  10. XGEVA [Concomitant]
     Active Substance: DENOSUMAB
     Route: 065

REACTIONS (3)
  - Pulmonary embolism [Not Recovered/Not Resolved]
  - Fatigue [Not Recovered/Not Resolved]
  - Diarrhoea [Not Recovered/Not Resolved]
